FAERS Safety Report 18946377 (Version 4)
Quarter: 2021Q2

REPORT INFORMATION
  Report Type: Spontaneous
  Country: US (occurrence: US)
  Receive Date: 20210226
  Receipt Date: 20210611
  Transmission Date: 20210717
  Serious: Yes (Congenital Anomaly, Other)
  Sender: FDA-Public Use
  Company Number: NVSC2021US041047

PATIENT
  Sex: Female

DRUGS (1)
  1. ZOFRAN [Suspect]
     Active Substance: ONDANSETRON HYDROCHLORIDE
     Indication: FOETAL EXPOSURE DURING PREGNANCY
     Dosage: MOTHER^S DOSE: 8 MG, THRICE A DAY (TID)
     Route: 064

REACTIONS (21)
  - Tricuspid valve incompetence [Unknown]
  - Depression [Unknown]
  - Right atrial enlargement [Unknown]
  - Syncope [Unknown]
  - Heart disease congenital [Unknown]
  - Chest pain [Unknown]
  - Hypotension [Unknown]
  - Asthma [Unknown]
  - Atrial septal defect [Unknown]
  - Injury [Unknown]
  - Anxiety [Unknown]
  - Right ventricular enlargement [Unknown]
  - Duane^s syndrome [Unknown]
  - Pulmonary artery dilatation [Unknown]
  - Mitral valve incompetence [Unknown]
  - Mitral valve prolapse [Unknown]
  - Acute sinusitis [Unknown]
  - Foetal exposure during pregnancy [Unknown]
  - Dizziness postural [Unknown]
  - Ventricular septal defect [Unknown]
  - Strabismus [Unknown]
